FAERS Safety Report 9605097 (Version 1)
Quarter: 2013Q4

REPORT INFORMATION
  Report Type: Spontaneous
  Country: DE (occurrence: FR)
  Receive Date: 20131008
  Receipt Date: 20131008
  Transmission Date: 20140711
  Serious: Yes (Hospitalization)
  Sender: FDA-Public Use
  Company Number: FR-FRI-1000049717

PATIENT
  Age: 78 Year
  Sex: Female

DRUGS (8)
  1. MEMANTINE [Suspect]
     Indication: DEMENTIA ALZHEIMER^S TYPE
     Dosage: 1 DF
     Route: 048
     Dates: start: 20120723, end: 20121011
  2. DETENSIEL [Concomitant]
  3. ASPEGIC [Concomitant]
  4. LEVOTHYROX [Concomitant]
  5. SERESTA [Concomitant]
  6. STILNOX [Concomitant]
  7. TRANSIPEG [Concomitant]
  8. PARACETAMOL [Concomitant]

REACTIONS (1)
  - Epilepsy [Recovered/Resolved]
